FAERS Safety Report 14653571 (Version 1)
Quarter: 2018Q1

REPORT INFORMATION
  Report Type: Spontaneous
  Country: JP (occurrence: JP)
  Receive Date: 20180319
  Receipt Date: 20180319
  Transmission Date: 20180509
  Serious: Yes (Other)
  Sender: FDA-Public Use
  Company Number: JP-CIPLA LTD.-2014JP00040

PATIENT

DRUGS (2)
  1. PACLITAXEL. [Suspect]
     Active Substance: PACLITAXEL
     Indication: UTERINE CANCER
     Dosage: 175 MG/M2 WAS  OVER A 3-H PERIOD
  2. CARBOPLATIN. [Suspect]
     Active Substance: CARBOPLATIN
     Indication: UTERINE CANCER
     Dosage: (AUC) = 6 INTRAVENOUSLY OVER A 30-MININTERVAL ON DAY 1 OF EACH TREATMENT CYCLE

REACTIONS (1)
  - Neutropenic sepsis [Recovered/Resolved]
